FAERS Safety Report 9688463 (Version 1)
Quarter: 2013Q4

REPORT INFORMATION
  Report Type: Spontaneous
  Country: US (occurrence: US)
  Receive Date: 20131114
  Receipt Date: 20131114
  Transmission Date: 20140711
  Serious: Yes (Other)
  Sender: FDA-Public Use
  Company Number: US-UCBSA-102951

PATIENT
  Sex: 0

DRUGS (7)
  1. VIMPAT [Suspect]
     Dosage: UNKNOWN DOSE
  2. VIMPAT [Suspect]
     Dosage: UPPED THREE WEEKS AGO
  3. SYNTHROID [Suspect]
     Dosage: 150 MCG
  4. SYNTHROID [Suspect]
     Dosage: 120 MCG
  5. SYNTHROID [Suspect]
     Dosage: 125 MCG
  6. TOPAMAX [Suspect]
     Dosage: UNKNOWN DOSE
  7. MEGASE 6 [Concomitant]
     Dosage: UNKNOWN DOSE

REACTIONS (17)
  - Drug hypersensitivity [Unknown]
  - Basedow^s disease [Unknown]
  - Decreased appetite [Unknown]
  - Blood glucose decreased [Unknown]
  - Amnesia [Unknown]
  - Nephrolithiasis [Unknown]
  - Herpes zoster [Unknown]
  - Vision blurred [Unknown]
  - Joint swelling [Unknown]
  - Pollakiuria [Unknown]
  - Pain in extremity [Unknown]
  - Pain [Unknown]
  - Hypersomnia [Unknown]
  - Feeling abnormal [Unknown]
  - Malaise [Unknown]
  - Musculoskeletal stiffness [Unknown]
  - Weight increased [Unknown]
